FAERS Safety Report 25367888 (Version 1)
Quarter: 2025Q2

REPORT INFORMATION
  Report Type: Spontaneous
  Country: SE (occurrence: SE)
  Receive Date: 20250528
  Receipt Date: 20250528
  Transmission Date: 20250717
  Serious: Yes (Hospitalization, Disabling)
  Sender: PFIZER
  Company Number: None

PATIENT
  Age: 40 Year
  Sex: Female
  Weight: 58 kg

DRUGS (1)
  1. DEPO-PROVERA [Suspect]
     Active Substance: MEDROXYPROGESTERONE ACETATE
     Indication: Contraception
     Dates: start: 20080401, end: 20201019

REACTIONS (6)
  - Diplopia [Unknown]
  - Sick leave [Unknown]
  - Fatigue [Unknown]
  - Mental fatigue [Unknown]
  - Meningioma [Recovered/Resolved with Sequelae]
  - Burning sensation [Unknown]

NARRATIVE: CASE EVENT DATE: 20200501
